FAERS Safety Report 4380068-1 (Version None)
Quarter: 2004Q2

REPORT INFORMATION
  Report Type: 
  Country: None (occurrence: None)
  Receive Date: 20040614
  Receipt Date: 20040526
  Transmission Date: 20050107
  Serious: Yes (Hospitalization)
  Sender: FDA-Public Use
  Company Number: DSA_24485_2004

PATIENT
  Age: 55 Year
  Sex: Male

DRUGS (6)
  1. DILTIAZEM HCL [Suspect]
     Dosage: 300 MG Q DAY PO
     Route: 048
     Dates: end: 20040409
  2. MESTINON [Concomitant]
  3. LEXOMIL [Concomitant]
  4. ALLOPURINOL TAB [Concomitant]
  5. PLAVIX [Concomitant]
  6. FONZYLANE [Concomitant]

REACTIONS (4)
  - HYPERHIDROSIS [None]
  - LOSS OF CONSCIOUSNESS [None]
  - MALAISE [None]
  - ORTHOSTATIC HYPOTENSION [None]
